FAERS Safety Report 12705437 (Version 1)
Quarter: 2016Q3

REPORT INFORMATION
  Report Type: Report from Study
  Country: MX (occurrence: MX)
  Receive Date: 20160901
  Receipt Date: 20160901
  Transmission Date: 20161109
  Serious: Yes (Death, Congenital Anomaly)
  Sender: FDA-Public Use
  Company Number: US-ASTRAZENECA-2010SE53638

PATIENT
  Age: 0 Day

DRUGS (3)
  1. METFORMIN HYDROCHLORIDE. [Suspect]
     Active Substance: METFORMIN HYDROCHLORIDE
     Route: 064
     Dates: end: 20100306
  2. SAXAGLIPTIN [Suspect]
     Active Substance: SAXAGLIPTIN
     Route: 064
     Dates: end: 20100306
  3. INSULIN [Suspect]
     Active Substance: INSULIN NOS
     Route: 064

REACTIONS (2)
  - Congenital anomaly [Fatal]
  - Stillbirth [Fatal]

NARRATIVE: CASE EVENT DATE: 20100713
